FAERS Safety Report 7211010-3 (Version None)
Quarter: 2011Q1

REPORT INFORMATION
  Report Type: 
  Country: None (occurrence: None)
  Receive Date: 20110105
  Receipt Date: 20101223
  Transmission Date: 20110831
  Serious: Yes (Other)
  Sender: FDA-Public Use
  Company Number: B0691938A

PATIENT
  Age: 52 Year
  Sex: Female

DRUGS (2)
  1. SALMETEROL [Concomitant]
     Indication: ASTHMA
     Dosage: 100UG TWICE PER DAY
     Route: 048
  2. FLUTICASONE PROPIONATE [Suspect]
     Indication: ASTHMA
     Dosage: 500UG TWICE PER DAY
     Route: 048

REACTIONS (5)
  - TUBERCULOUS LARYNGITIS [None]
  - NECROSIS [None]
  - GRANULOMA [None]
  - DYSPHONIA [None]
  - LARYNGEAL ULCERATION [None]
